FAERS Safety Report 7057445-3 (Version None)
Quarter: 2010Q4

REPORT INFORMATION
  Report Type: 
  Country: None (occurrence: None)
  Receive Date: 20101022
  Receipt Date: 20101007
  Transmission Date: 20110411
  Serious: Yes (Hospitalization)
  Sender: FDA-Public Use
  Company Number: PHHY2010CA70459

PATIENT
  Sex: Female

DRUGS (2)
  1. DIOVAN HCT [Suspect]
     Dosage: 160/12.5 MG
     Route: 048
  2. ADALAT CC [Concomitant]
     Dosage: 30 MG

REACTIONS (4)
  - ACCIDENT [None]
  - FALL [None]
  - HYPOAESTHESIA ORAL [None]
  - PAIN [None]
